FAERS Safety Report 4745538-2 (Version None)
Quarter: 2005Q3

REPORT INFORMATION
  Report Type: 
  Country: None (occurrence: None)
  Receive Date: 20050811
  Receipt Date: 20050610
  Transmission Date: 20060218
  Serious: Yes (Disabling, Other)
  Sender: FDA-Public Use
  Company Number: US_0412108856

PATIENT
  Age: 41 Year
  Sex: Male
  Weight: 74 kg

DRUGS (15)
  1. HUMULIN L [Suspect]
     Indication: DIABETES MELLITUS
     Dosage: 10 U/2 DAY
     Dates: start: 19920101
  2. HUMALOG [Suspect]
     Indication: DIABETES MELLITUS
     Dates: start: 19970101
  3. HUMULIN R [Suspect]
     Indication: DIABETES MELLITUS
     Dates: start: 19920101, end: 19970101
  4. HUMULIN U [Suspect]
     Indication: DIABETES MELLITUS
     Dates: start: 19940610
  5. REGULAR ILETIN II [Suspect]
     Indication: DIABETES MELLITUS
     Dates: start: 19660101
  6. HUMULIN N [Suspect]
     Indication: DIABETES MELLITUS
     Dosage: 14 U DAY
     Dates: start: 20040503
  7. ULTRALENTE ILETIN [Suspect]
     Indication: DIABETES MELLITUS
     Dates: start: 19660101
  8. ULTRA-LENTE ILETIN INSULIN [Suspect]
     Indication: DIABETES MELLITUS
     Dates: start: 19681209
  9. ILETIN [Suspect]
     Indication: DIABETES MELLITUS
     Dates: start: 19681209
  10. LENTE ILETIN (BEEF-PORK) INSULIN ZINC [Suspect]
     Indication: DIABETES MELLITUS
  11. INSULIN [Concomitant]
     Indication: DIABETES MELLITUS
  12. ASPIRIN [Concomitant]
  13. CENTRUM [Concomitant]
  14. PREVACID [Concomitant]
  15. VITAMIN E [Concomitant]

REACTIONS (32)
  - ABDOMINAL PAIN [None]
  - ABDOMINAL PAIN UPPER [None]
  - AMNESIA [None]
  - BRONCHITIS [None]
  - COMA [None]
  - CONSTIPATION [None]
  - DEMENTIA [None]
  - DEPRESSION [None]
  - DIABETIC RETINOPATHY [None]
  - DIARRHOEA [None]
  - DILATATION ATRIAL [None]
  - DISTURBANCE IN ATTENTION [None]
  - DIZZINESS [None]
  - DYSPNOEA EXERTIONAL [None]
  - GASTROENTERITIS VIRAL [None]
  - HEPATIC ENZYME INCREASED [None]
  - HEPATIC STEATOSIS [None]
  - HYPERKERATOSIS [None]
  - HYPOGLYCAEMIC SEIZURE [None]
  - INFUSION SITE INDURATION [None]
  - LIMB INJURY [None]
  - LOSS OF CONSCIOUSNESS [None]
  - MAJOR DEPRESSION [None]
  - NERVE INJURY [None]
  - NIGHTMARE [None]
  - OVERDOSE [None]
  - PAIN IN EXTREMITY [None]
  - PERIARTHRITIS [None]
  - ROTATOR CUFF SYNDROME [None]
  - STRESS [None]
  - SUICIDAL IDEATION [None]
  - VISION BLURRED [None]
